FAERS Safety Report 8843790 (Version 1)
Quarter: 2012Q4

REPORT INFORMATION
  Report Type: 
  Country: US (occurrence: US)
  Receive Date: 20121016
  Receipt Date: 20121016
  Transmission Date: 20130627
  Serious: Yes (Hospitalization)
  Sender: FDA-Public Use
  Company Number: US-009507513-1210USA005933

PATIENT
  Age: 70 Year
  Sex: Male
  Weight: 103 kg

DRUGS (7)
  1. AZACITIDINE [Suspect]
     Indication: MYELODYSPLASTIC SYNDROME
     Dosage: 300 mg, bid on days 3-9
     Route: 048
     Dates: start: 20120928
  2. LENALIDOMIDE [Suspect]
     Indication: MYELODYSPLASTIC SYNDROME
     Dosage: 300 mg, bid on days 3-9
     Route: 048
     Dates: start: 20120928
  3. BLINDED PLACEBO [Suspect]
     Indication: MYELODYSPLASTIC SYNDROME
     Dosage: 300 mg, bid on days 3-9
     Route: 048
     Dates: start: 20120928
  4. BLINDED POST TRIAL THERAPY [Suspect]
     Indication: MYELODYSPLASTIC SYNDROME
     Dosage: 300 mg, bid on days 3-9
     Route: 048
     Dates: start: 20120928
  5. BLINDED PRE TRIAL THERAPY [Suspect]
     Indication: MYELODYSPLASTIC SYNDROME
     Dosage: 300 mg, bid on days 3-9
     Route: 048
     Dates: start: 20120928
  6. BLINDED VORINOSTAT [Suspect]
     Indication: MYELODYSPLASTIC SYNDROME
     Dosage: 300 mg, bid on days 3-9
     Route: 048
     Dates: start: 20120928
  7. AZACITIDINE [Suspect]
     Indication: MYELODYSPLASTIC SYNDROME
     Dosage: 75 mg/m2  SQ or IV on days 1-7 or 1-5 and days 8-9
     Route: 058
     Dates: start: 20120926

REACTIONS (3)
  - Diverticulitis [Recovered/Resolved]
  - Constipation [Recovered/Resolved]
  - Gastrointestinal pain [Recovered/Resolved]
